FAERS Safety Report 7932118-0 (Version None)
Quarter: 2011Q4

REPORT INFORMATION
  Report Type: 
  Country: None (occurrence: None)
  Receive Date: 20111121
  Receipt Date: 20111110
  Transmission Date: 20120403
  Serious: Yes (Hospitalization)
  Sender: FDA-Public Use
  Company Number: US-ASTRAZENECA-2010SE46851

PATIENT
  Age: 53 Year
  Sex: Female
  Weight: 90.7 kg

DRUGS (52)
  1. NEXIUM [Suspect]
     Route: 048
     Dates: start: 20100101
  2. NEXIUM [Suspect]
     Route: 048
  3. LISINOPRIL [Suspect]
     Indication: BLOOD PRESSURE
     Route: 048
  4. SEROQUEL XR [Suspect]
     Indication: SLEEP DISORDER
     Route: 048
     Dates: start: 20070101
  5. SEROQUEL XR [Suspect]
     Route: 048
     Dates: start: 20080801
  6. SEROQUEL XR [Suspect]
     Route: 048
  7. METHYLDOPA [Concomitant]
     Indication: COUGH
     Dosage: 1-2 TSP Q4-6H
  8. CYMBALTA [Concomitant]
     Indication: DEPRESSION
     Route: 048
     Dates: start: 20110801
  9. ALLEGRA [Concomitant]
     Indication: SEASONAL ALLERGY
     Route: 048
     Dates: start: 20100101
  10. TYLENOL EXTRA STRENGTH [Concomitant]
     Indication: HEADACHE
     Route: 048
     Dates: start: 19760101
  11. EPINEPHRINE [Concomitant]
     Indication: MOTION SICKNESS
     Route: 048
  12. EPINEPHRINE [Concomitant]
     Indication: DIZZINESS
     Route: 048
  13. LOSARTAN [Concomitant]
     Indication: BLOOD PRESSURE
     Route: 048
  14. LOSARTAN [Concomitant]
     Route: 048
  15. NEXIUM [Suspect]
     Indication: GASTROOESOPHAGEAL REFLUX DISEASE
     Route: 048
     Dates: start: 20090101
  16. NEXIUM [Suspect]
     Route: 048
     Dates: start: 20090101
  17. NEXIUM [Suspect]
     Route: 048
  18. DOXYCYCLINE [Concomitant]
     Indication: ANTIBIOTIC THERAPY
     Dosage: 100 MG, TWO TIMES A DAY
  19. DONNATAL [Concomitant]
     Indication: IRRITABLE BOWEL SYNDROME
     Dosage: 16.2 MG THREE TIMES A DAY
  20. PROZAC [Concomitant]
     Indication: DEPRESSION
     Route: 048
     Dates: start: 20010101
  21. ASPIRIN [Concomitant]
     Indication: CARDIAC DISORDER
  22. ZOFRAN [Concomitant]
     Indication: NAUSEA
  23. CLONIDINE [Concomitant]
     Indication: BLOOD PRESSURE
     Route: 048
     Dates: start: 20100101
  24. NEXIUM [Suspect]
     Route: 048
     Dates: start: 20100101
  25. SEROQUEL XR [Suspect]
     Route: 048
  26. SEROQUEL XR [Suspect]
     Route: 048
  27. LASIX [Concomitant]
     Route: 048
     Dates: start: 20060101
  28. EMLODAPINE [Concomitant]
     Indication: BLOOD PRESSURE
     Route: 048
  29. DECADRON [Concomitant]
  30. TOPROL-XL [Suspect]
     Indication: HYPERTENSION
     Route: 048
     Dates: start: 20080101
  31. CRESTOR [Suspect]
     Route: 048
  32. VITAMIN D [Concomitant]
  33. TOPROL-XL [Suspect]
     Route: 048
  34. SEROQUEL XR [Suspect]
     Indication: NERVOUSNESS
     Route: 048
     Dates: start: 20070101
  35. SEROQUEL XR [Suspect]
     Route: 048
     Dates: start: 20080801
  36. KLONOPIN [Concomitant]
     Indication: ANXIETY
     Dosage: 1 MG, THREE TIMES A DAY
     Route: 048
     Dates: start: 19910101
  37. LABETALOL HCL [Concomitant]
     Indication: BLOOD PRESSURE
     Dosage: 300 MG, THREE TIMES A DAY
  38. LIVATALOL [Concomitant]
     Indication: BLOOD CHOLESTEROL ABNORMAL
  39. MIRAPEX [Concomitant]
     Indication: RESTLESS LEGS SYNDROME
     Route: 048
     Dates: start: 20090101
  40. TRAMADOL HCL [Concomitant]
  41. CYMBALTA [Concomitant]
     Indication: MIGRAINE
     Route: 048
     Dates: start: 20110801
  42. NEXIUM [Suspect]
     Indication: DYSPEPSIA
     Route: 048
     Dates: start: 20090101
  43. NEXIUM [Suspect]
     Route: 048
     Dates: start: 20100101
  44. LASIX [Concomitant]
     Indication: OEDEMA
     Route: 048
  45. TRAZODONE HCL [Concomitant]
     Indication: NERVOUSNESS
     Route: 048
     Dates: start: 20110801
  46. NEXIUM [Suspect]
     Route: 048
  47. SEROQUEL XR [Suspect]
     Indication: DEPRESSION
     Route: 048
     Dates: start: 20070101
  48. SEROQUEL XR [Suspect]
     Route: 048
     Dates: start: 20080801
  49. KLONOPIN [Concomitant]
     Indication: DEPRESSION
     Dosage: 1 MG, THREE TIMES A DAY
     Route: 048
     Dates: start: 19910101
  50. OXYCODONE HCL [Concomitant]
  51. NORVASC [Concomitant]
     Indication: BLOOD PRESSURE
     Route: 048
     Dates: start: 20100101
  52. PHENOBARBITAL TAB [Concomitant]
     Indication: IRRITABLE BOWEL SYNDROME
     Dosage: 16.2 MG, THREE TIMES A DAY
     Route: 048
     Dates: start: 19910101

REACTIONS (15)
  - NAUSEA [None]
  - INSOMNIA [None]
  - HYPERTENSION [None]
  - BRONCHITIS [None]
  - CHEST PAIN [None]
  - DRUG INEFFECTIVE [None]
  - OFF LABEL USE [None]
  - TRANSIENT ISCHAEMIC ATTACK [None]
  - PAIN IN EXTREMITY [None]
  - AMNESIA [None]
  - DRUG DOSE OMISSION [None]
  - DIARRHOEA [None]
  - BLOOD PRESSURE INCREASED [None]
  - CLUSTER HEADACHE [None]
  - WEIGHT DECREASED [None]
